FAERS Safety Report 4441712-3 (Version None)
Quarter: 2004Q3

REPORT INFORMATION
  Report Type: 
  Country: None (occurrence: None)
  Receive Date: 20040907
  Receipt Date: 20040901
  Transmission Date: 20050211
  Serious: Yes (Other)
  Sender: FDA-Public Use
  Company Number: PHNU2004DE03099

PATIENT
  Age: 25 Year
  Sex: Male

DRUGS (3)
  1. RITALIN [Suspect]
     Indication: DISTURBANCE IN ATTENTION
     Dosage: UNKNOWN
     Route: 048
     Dates: start: 20010101
  2. RITALIN [Suspect]
     Dosage: UNKNOWN
     Route: 048
  3. RITALIN-SR [Suspect]
     Indication: DISTURBANCE IN ATTENTION
     Dosage: 1 TAB/DAY
     Route: 048

REACTIONS (2)
  - HYPERTHYROIDISM [None]
  - SLEEP DISORDER [None]
